APPROVED DRUG PRODUCT: ESGIC-PLUS
Active Ingredient: ACETAMINOPHEN; BUTALBITAL; CAFFEINE
Strength: 500MG;50MG;40MG
Dosage Form/Route: CAPSULE;ORAL
Application: A040085 | Product #001
Applicant: MIKART LLC
Approved: Mar 28, 1996 | RLD: No | RS: No | Type: DISCN